FAERS Safety Report 24273215 (Version 2)
Quarter: 2024Q3

REPORT INFORMATION
  Report Type: Spontaneous
  Country: PL (occurrence: PL)
  Receive Date: 20240902
  Receipt Date: 20240917
  Transmission Date: 20241017
  Serious: Yes (Congenital Anomaly, Other)
  Sender: JOHNSON AND JOHNSON
  Company Number: PL-LESVI-2024004743

PATIENT
  Sex: Male
  Weight: 2.48 kg

DRUGS (8)
  1. RISPERDAL [Suspect]
     Active Substance: RISPERIDONE
     Indication: Maternal exposure timing unspecified
     Route: 064
  2. BUSPIRONE [Suspect]
     Active Substance: BUSPIRONE HYDROCHLORIDE
     Indication: Maternal exposure timing unspecified
     Route: 064
  3. TRAZODONE [Suspect]
     Active Substance: TRAZODONE HYDROCHLORIDE
     Indication: Maternal exposure timing unspecified
     Route: 064
  4. LACOSAMIDE [Suspect]
     Active Substance: LACOSAMIDE
     Indication: Maternal exposure timing unspecified
     Dosage: 2 X 200 MG
     Route: 064
  5. LEVETIRACETAM [Suspect]
     Active Substance: LEVETIRACETAM
     Indication: Maternal exposure timing unspecified
     Dosage: 2 X 1,500 MG
     Route: 064
  6. LAMOTRIGINE [Suspect]
     Active Substance: LAMOTRIGINE
     Indication: Maternal exposure timing unspecified
     Dosage: 2 X 100 MG
     Route: 064
  7. LAMOTRIGINE [Suspect]
     Active Substance: LAMOTRIGINE
     Dosage: 2 X 250 MG
     Route: 064
  8. DIAZEPAM [Suspect]
     Active Substance: DIAZEPAM
     Indication: Maternal exposure timing unspecified
     Dosage: 10 MG OF DIAZEPAM IN BOLUS
     Route: 063

REACTIONS (3)
  - Karyotype analysis abnormal [Unknown]
  - Foetal exposure during pregnancy [Unknown]
  - Low birth weight baby [Unknown]
